FAERS Safety Report 9166976 (Version 1)
Quarter: 2013Q1

REPORT INFORMATION
  Report Type: Report from Study
  Country: RU (occurrence: RU)
  Receive Date: 20130317
  Receipt Date: 20130317
  Transmission Date: 20140127
  Serious: Yes (Hospitalization)
  Sender: FDA-Public Use
  Company Number: PHHY2013RU025070

PATIENT
  Age: 64 Year
  Sex: Male

DRUGS (1)
  1. NILOTINIB [Suspect]
     Dosage: UNK

REACTIONS (2)
  - Cerebral ischaemia [Recovering/Resolving]
  - Hemiparesis [Recovering/Resolving]
